FAERS Safety Report 11451763 (Version 1)
Quarter: 2015Q3

REPORT INFORMATION
  Report Type: Spontaneous
  Country: US (occurrence: US)
  Receive Date: 20150903
  Receipt Date: 20150903
  Transmission Date: 20151125
  Serious: Yes (Other)
  Sender: FDA-Public Use
  Company Number: US-ROCHE-1629351

PATIENT
  Sex: Male

DRUGS (1)
  1. ESBRIET [Suspect]
     Active Substance: PIRFENIDONE
     Indication: IDIOPATHIC PULMONARY FIBROSIS
     Dosage: 9 PILLS/DAY
     Route: 065
     Dates: start: 20150413

REACTIONS (4)
  - Fatigue [Unknown]
  - Asthenia [Unknown]
  - Muscular weakness [Not Recovered/Not Resolved]
  - Dyspepsia [Recovered/Resolved]
